FAERS Safety Report 9776038 (Version 2)
Quarter: 2014Q1

REPORT INFORMATION
  Report Type: Spontaneous
  Country: GB (occurrence: GB)
  Receive Date: 20131220
  Receipt Date: 20140117
  Transmission Date: 20141002
  Serious: Yes (Other)
  Sender: FDA-Public Use
  Company Number: GB-ACTAVIS-2013-23155

PATIENT
  Age: 38 Year
  Sex: Male

DRUGS (1)
  1. FINASTERIDE (UNKNOWN) [Suspect]
     Indication: ALOPECIA
     Dosage: 1 MG, DAILY
     Route: 048
     Dates: start: 20101002, end: 20101028

REACTIONS (2)
  - Pollakiuria [Recovering/Resolving]
  - Nocturia [Recovering/Resolving]
